FAERS Safety Report 18623252 (Version 1)
Quarter: 2020Q4

REPORT INFORMATION
  Report Type: Spontaneous
  Country: US (occurrence: US)
  Receive Date: 20201216
  Receipt Date: 20201216
  Transmission Date: 20210114
  Serious: Yes (Other)
  Sender: FDA-Public Use
  Company Number: None

PATIENT
  Age: 69 Year
  Sex: Female
  Weight: 70.38 kg

DRUGS (7)
  1. ZOMETA [Concomitant]
     Active Substance: ZOLEDRONIC ACID
  2. ALEVE [Concomitant]
     Active Substance: NAPROXEN SODIUM
  3. CALCIUM [Concomitant]
     Active Substance: CALCIUM
  4. KISQALI [Suspect]
     Active Substance: RIBOCICLIB
     Indication: BREAST CANCER
     Route: 048
     Dates: start: 20191206
  5. FASLODEX [Concomitant]
     Active Substance: FULVESTRANT
  6. MULTIVITAMIN [Concomitant]
     Active Substance: VITAMINS
  7. COSAMIN [Concomitant]

REACTIONS (2)
  - Pigmentation disorder [None]
  - Arthralgia [None]

NARRATIVE: CASE EVENT DATE: 20201216
